FAERS Safety Report 8795132 (Version 2)
Quarter: 2015Q1

REPORT INFORMATION
  Report Type: Report from Study
  Country: US (occurrence: US)
  Receive Date: 20120917
  Receipt Date: 20150316
  Transmission Date: 20150721
  Serious: Yes (Death, Hospitalization)
  Sender: FDA-Public Use
  Company Number: US-ROCHE-1124423

PATIENT
  Age: 53 Year
  Sex: Female
  Weight: 76.73 kg

DRUGS (16)
  1. CARBOPLATIN. [Concomitant]
     Active Substance: CARBOPLATIN
     Route: 042
  2. DEXAMETHASONE. [Concomitant]
     Active Substance: DEXAMETHASONE
     Route: 042
  3. VP-16 [Concomitant]
     Active Substance: ETOPOSIDE
     Route: 042
  4. AMBIEN [Concomitant]
     Active Substance: ZOLPIDEM TARTRATE
  5. KYTRIL [Concomitant]
     Active Substance: GRANISETRON HYDROCHLORIDE
     Route: 042
  6. ANZEMET [Concomitant]
     Active Substance: DOLASETRON MESYLATE
     Route: 042
  7. NEUPOGEN [Concomitant]
     Active Substance: FILGRASTIM
     Route: 065
  8. PROCRIT [Concomitant]
     Active Substance: ERYTHROPOIETIN
     Route: 042
  9. XANAX [Concomitant]
     Active Substance: ALPRAZOLAM
     Dosage: AT EVENING
     Route: 065
  10. FENTANYL. [Concomitant]
     Active Substance: FENTANYL
     Route: 065
  11. AVASTIN [Suspect]
     Active Substance: BEVACIZUMAB
     Indication: LUNG NEOPLASM MALIGNANT
     Route: 042
     Dates: start: 20060512, end: 20060721
  12. DILAUDID [Concomitant]
     Active Substance: HYDROMORPHONE HYDROCHLORIDE
  13. TAXOL [Concomitant]
     Active Substance: PACLITAXEL
  14. HEPARIN [Concomitant]
     Active Substance: HEPARIN SODIUM
     Route: 042
  15. TAXOTERE [Concomitant]
     Active Substance: DOCETAXEL
     Route: 042
  16. ZOLOFT [Concomitant]
     Active Substance: SERTRALINE HYDROCHLORIDE
     Route: 065

REACTIONS (13)
  - Depression [Unknown]
  - Pneumonia staphylococcal [Unknown]
  - Death [Fatal]
  - Chest pain [Unknown]
  - Radiation pneumonitis [Unknown]
  - Pyrexia [Unknown]
  - Dysphagia [Unknown]
  - Cough [Unknown]
  - Radiation oesophagitis [Unknown]
  - Orthopnoea [Unknown]
  - Disease progression [Unknown]
  - Off label use [Unknown]
  - Bronchitis [Unknown]

NARRATIVE: CASE EVENT DATE: 20060906
